FAERS Safety Report 11485976 (Version 1)
Quarter: 2015Q3

REPORT INFORMATION
  Report Type: Spontaneous
  Country: US (occurrence: US)
  Receive Date: 20150910
  Receipt Date: 20150910
  Transmission Date: 20151125
  Serious: No
  Sender: FDA-Public Use
  Company Number: US-AMGEN-USASP2015092627

PATIENT
  Age: 61 Year
  Sex: Male

DRUGS (2)
  1. ENBREL [Suspect]
     Active Substance: ETANERCEPT
     Indication: PSORIASIS
     Dosage: UNK
     Route: 065
  2. ENBREL [Suspect]
     Active Substance: ETANERCEPT
     Dosage: UNK, 2 TIMES/WK
     Route: 065

REACTIONS (9)
  - Injection site warmth [Unknown]
  - Injection site discomfort [Unknown]
  - Injection site pruritus [Unknown]
  - Psoriasis [Unknown]
  - Injection site erythema [Unknown]
  - Injection site reaction [Unknown]
  - Bronchitis [Unknown]
  - Injection site pain [Unknown]
  - Injection site swelling [Unknown]
